FAERS Safety Report 18242956 (Version 3)
Quarter: 2020Q4

REPORT INFORMATION
  Report Type: Spontaneous
  Country: US (occurrence: US)
  Receive Date: 20200908
  Receipt Date: 20201211
  Transmission Date: 20210113
  Serious: Yes (Life-Threatening, Hospitalization)
  Sender: FDA-Public Use
  Company Number: US-ALLERGAN-2033415US

PATIENT
  Sex: Female
  Weight: 64.85 kg

DRUGS (5)
  1. REFRESH RELIEVA PRESERVATIVE FREE [Suspect]
     Active Substance: CARBOXYMETHYLCELLULOSE SODIUM\GLYCERIN
     Indication: DRY EYE
     Dosage: UNK UNK, QD
     Route: 047
     Dates: start: 202003
  2. REFRESH RELIEVA PRESERVATIVE FREE [Suspect]
     Active Substance: CARBOXYMETHYLCELLULOSE SODIUM\GLYCERIN
     Indication: DRY EYE
     Dosage: UNK UNK, QD
     Route: 047
     Dates: start: 202003
  3. REFRESH RELIEVA PRESERVATIVE FREE [Suspect]
     Active Substance: CARBOXYMETHYLCELLULOSE SODIUM\GLYCERIN
     Indication: DRY EYE
     Dosage: UNK UNK, QD
     Route: 047
     Dates: start: 202003
  4. REFRESH PLUS [Concomitant]
     Active Substance: CARBOXYMETHYLCELLULOSE SODIUM
     Indication: DRY EYE
     Dosage: UNK
     Route: 047
  5. REFRESH RELIEVA PRESERVATIVE FREE [Suspect]
     Active Substance: CARBOXYMETHYLCELLULOSE SODIUM\GLYCERIN
     Indication: DRY EYE
     Dosage: UNK UNK, QD
     Route: 047
     Dates: start: 202003

REACTIONS (3)
  - Product packaging issue [Unknown]
  - Haemoglobin decreased [Unknown]
  - Rectal haemorrhage [Recovered/Resolved]
